FAERS Safety Report 5021917-3 (Version None)
Quarter: 2006Q2

REPORT INFORMATION
  Report Type: 
  Country: None (occurrence: None)
  Receive Date: 20060609
  Receipt Date: 20060601
  Transmission Date: 20061013
  Serious: Yes (Other)
  Sender: FDA-Public Use
  Company Number: US-JNJFOC-20060600547

PATIENT
  Sex: Male

DRUGS (13)
  1. REMICADE [Suspect]
     Indication: RHEUMATOID ARTHRITIS
     Route: 042
  2. ASPIRIN [Concomitant]
  3. CLARITIN [Concomitant]
  4. DIOVAN [Concomitant]
  5. GLUCOSAMINE [Concomitant]
  6. METHOTREXATE [Concomitant]
  7. NABUMETONE [Concomitant]
  8. SULAR [Concomitant]
  9. TOPROL-XL [Concomitant]
  10. TRIAMTERENE [Concomitant]
  11. MSM [Concomitant]
  12. NEXIUM [Concomitant]
  13. ZOCOR [Concomitant]

REACTIONS (1)
  - SQUAMOUS CELL CARCINOMA [None]
